FAERS Safety Report 17669840 (Version 2)
Quarter: 2020Q2

REPORT INFORMATION
  Report Type: Spontaneous
  Country: CA (occurrence: CA)
  Receive Date: 20200415
  Receipt Date: 20200422
  Transmission Date: 20200713
  Serious: Yes (Other)
  Sender: FDA-Public Use
  Company Number: CA-PFIZER INC-2020154891

PATIENT
  Age: 44 Year
  Sex: Male

DRUGS (1)
  1. CLINDAMYCIN HCL [Suspect]
     Active Substance: CLINDAMYCIN HYDROCHLORIDE
     Dosage: UNK UNK, THREE TIMES A DAY (FOR 17 DAYS)
     Route: 065
     Dates: start: 2020, end: 2020

REACTIONS (24)
  - Diarrhoea haemorrhagic [Unknown]
  - Abdominal pain lower [Unknown]
  - Abdominal tenderness [Unknown]
  - Carbon dioxide increased [Recovered/Resolved]
  - Haemoglobin decreased [Not Recovered/Not Resolved]
  - Abdominal pain upper [Unknown]
  - Proctitis [Unknown]
  - Haematocrit decreased [Not Recovered/Not Resolved]
  - Blood chloride decreased [Unknown]
  - Weight decreased [Unknown]
  - Lymphocyte count increased [Not Recovered/Not Resolved]
  - Large intestinal ulcer [Unknown]
  - Red blood cell count decreased [Not Recovered/Not Resolved]
  - Blood sodium decreased [Unknown]
  - Monocyte count increased [Unknown]
  - Pyrexia [Recovered/Resolved]
  - Asthenia [Unknown]
  - White blood cell count increased [Recovering/Resolving]
  - Platelet count increased [Recovering/Resolving]
  - Neutrophil count increased [Recovered/Resolved]
  - Colitis ulcerative [Unknown]
  - C-reactive protein increased [Unknown]
  - Eosinophil count decreased [Recovered/Resolved]
  - Colitis [Unknown]

NARRATIVE: CASE EVENT DATE: 2020
